FAERS Safety Report 7710582-X (Version None)
Quarter: 2011Q3

REPORT INFORMATION
  Report Type: 
  Country: None (occurrence: None)
  Receive Date: 20110817
  Receipt Date: 20110809
  Transmission Date: 20111222
  Serious: Yes (Other)
  Sender: FDA-Public Use
  Company Number: 2010026943

PATIENT
  Age: 66 Year
  Sex: Female
  Weight: 76.2043 kg

DRUGS (30)
  1. HIZENTRA [Suspect]
  2. AMOXICILLIN [Concomitant]
  3. DIOVAN [Concomitant]
  4. ROPINIROLE [Concomitant]
  5. HIZENTRA [Suspect]
     Indication: IMMUNODEFICIENCY COMMON VARIABLE
     Dosage: SEE IMAGE
     Route: 058
  6. HIZENTRA [Suspect]
     Indication: SELECTIVE IGA IMMUNODEFICIENCY
     Dosage: SEE IMAGE
     Route: 058
  7. HIZENTRA [Suspect]
  8. HIZENTRA [Suspect]
  9. HIZENTRA [Suspect]
  10. LIPITOR [Concomitant]
  11. HIZENTRA [Suspect]
  12. ALPRAZOLAM EXTENDED-RELEASE [Concomitant]
  13. DOMPERIDONE (DOMPERIDONE) [Concomitant]
  14. CLARITHROMYCIN [Concomitant]
  15. POTASSIUM CHLORIDE [Concomitant]
  16. BACTRIM [Concomitant]
  17. HIZENTRA [Suspect]
  18. HIZENTRA [Suspect]
  19. HIZENTRA [Suspect]
  20. UROXATRAL [Concomitant]
  21. IBUPROFEN [Concomitant]
  22. PRILOSEC [Concomitant]
  23. SODIUM BICARBONATE IN PLASTIC CONTAINER [Concomitant]
  24. HIZENTRA [Suspect]
  25. HIZENTRA [Suspect]
  26. HIZENTRA [Suspect]
  27. FLUCONAZOLE [Concomitant]
  28. LASIX [Concomitant]
  29. CALTRATE (CALCIUM CARBONATE) [Concomitant]
  30. FOLBIC (ACCOMIN MULTIVITAMIN) [Concomitant]

REACTIONS (8)
  - BRONCHITIS [None]
  - INFUSION SITE PRURITUS [None]
  - BLOOD SODIUM DECREASED [None]
  - INFUSION SITE SWELLING [None]
  - HYPOTENSION [None]
  - NAUSEA [None]
  - INFUSION RELATED REACTION [None]
  - URINARY TRACT INFECTION [None]
